FAERS Safety Report 16691779 (Version 3)
Quarter: 2019Q3

REPORT INFORMATION
  Report Type: Report from Study
  Country: None (occurrence: US)
  Receive Date: 20190812
  Receipt Date: 20190924
  Transmission Date: 20191004
  Serious: Yes (Hospitalization, Other)
  Sender: FDA-Public Use
  Company Number: US-ABBVIE-19K-163-2879657-00

PATIENT
  Age: 84 Year
  Sex: Female
  Weight: 71.73 kg

DRUGS (7)
  1. HUMIRA [Suspect]
     Active Substance: ADALIMUMAB
     Indication: CROHN^S DISEASE
     Route: 058
     Dates: start: 201807
  2. HUMIRA [Suspect]
     Active Substance: ADALIMUMAB
     Route: 058
     Dates: start: 20190701, end: 2019
  3. OXYCODONE [Concomitant]
     Active Substance: OXYCODONE
     Indication: PROCEDURAL PAIN
  4. CELEBREX [Concomitant]
     Active Substance: CELECOXIB
     Indication: PROCEDURAL PAIN
  5. CORTISONE [Concomitant]
     Active Substance: CORTISONE
     Indication: OSTEOARTHRITIS
  6. TRAMADOL. [Concomitant]
     Active Substance: TRAMADOL
     Indication: PROCEDURAL PAIN
  7. PENTASA [Concomitant]
     Active Substance: MESALAMINE
     Indication: CROHN^S DISEASE

REACTIONS (6)
  - Tendon rupture [Unknown]
  - Infection [Recovered/Resolved]
  - Ligament sprain [Recovering/Resolving]
  - Post procedural complication [Recovered/Resolved]
  - Wound secretion [Recovered/Resolved]
  - Fall [Recovered/Resolved]

NARRATIVE: CASE EVENT DATE: 2019
